FAERS Safety Report 15245936 (Version 2)
Quarter: 2018Q3

REPORT INFORMATION
  Report Type: Spontaneous
  Country: JP (occurrence: JP)
  Receive Date: 20180806
  Receipt Date: 20180830
  Transmission Date: 20181010
  Serious: Yes (Hospitalization)
  Sender: FDA-Public Use
  Company Number: PHJP2018JP014546

PATIENT
  Sex: Male

DRUGS (1)
  1. NEORAL [Suspect]
     Active Substance: CYCLOSPORINE
     Indication: APLASIA PURE RED CELL
     Dosage: UNK
     Route: 048

REACTIONS (3)
  - Movement disorder [Unknown]
  - Product use in unapproved indication [Unknown]
  - Myopathy [Unknown]
